FAERS Safety Report 5899658-X (Version None)
Quarter: 2008Q3

REPORT INFORMATION
  Report Type: 
  Country: None (occurrence: None)
  Receive Date: 20080926
  Receipt Date: 20080917
  Transmission Date: 20090109
  Serious: Yes (Other)
  Sender: FDA-Public Use
  Company Number: GB-JNJFOC-20080904077

PATIENT
  Sex: Female

DRUGS (5)
  1. REMICADE [Suspect]
     Indication: UVEITIS
     Route: 042
  2. ATROPINE [Concomitant]
     Indication: UVEITIS
     Route: 047
  3. METHOTREXATE [Concomitant]
     Indication: UVEITIS
     Route: 048
  4. PRED FORTE [Concomitant]
     Indication: UVEITIS
     Route: 047
  5. PREDNISOLONE [Concomitant]
     Indication: UVEITIS
     Route: 048

REACTIONS (5)
  - NAUSEA [None]
  - ORBITAL OEDEMA [None]
  - PARAESTHESIA ORAL [None]
  - RASH ERYTHEMATOUS [None]
  - VOMITING [None]
